FAERS Safety Report 7548097-4 (Version None)
Quarter: 2011Q2

REPORT INFORMATION
  Report Type: 
  Country: None (occurrence: None)
  Receive Date: 20110524
  Receipt Date: 20110302
  Transmission Date: 20111010
  Serious: No
  Sender: FDA-Public Use
  Company Number: 026649

PATIENT
  Sex: Female
  Weight: 76.7 kg

DRUGS (12)
  1. ENTOCORT EC [Concomitant]
  2. MULTI-VITAMIN [Concomitant]
  3. POTASSIUM [Concomitant]
  4. CALCIUM CARBONATE [Concomitant]
  5. PRILOSEC [Concomitant]
  6. ACIDOPHILUS [Concomitant]
  7. LISINOPRIL [Concomitant]
  8. VITAMIN D [Concomitant]
  9. CIMZIA [Suspect]
     Indication: CROHN'S DISEASE
     Dosage: SUBCUTANEOUS, 2 SHOTS  SUBCUTANEOUS, 1 SHOT SUBCUTANEOUS
     Route: 058
     Dates: start: 20100301
  10. CIMZIA [Suspect]
     Indication: CROHN'S DISEASE
     Dosage: SUBCUTANEOUS, 2 SHOTS  SUBCUTANEOUS, 1 SHOT SUBCUTANEOUS
     Route: 058
     Dates: start: 20100401
  11. CIMZIA [Suspect]
     Indication: CROHN'S DISEASE
     Dosage: SUBCUTANEOUS, 2 SHOTS  SUBCUTANEOUS, 1 SHOT SUBCUTANEOUS
     Route: 058
     Dates: start: 20110221
  12. BENEFIBER FIBER SUPPLEMENT [Concomitant]

REACTIONS (3)
  - GASTROINTESTINAL DISORDER [None]
  - DRUG INEFFECTIVE [None]
  - CONSTIPATION [None]
